FAERS Safety Report 5478145-7 (Version None)
Quarter: 2007Q4

REPORT INFORMATION
  Report Type: 
  Country: None (occurrence: None)
  Receive Date: 20071005
  Receipt Date: 20061228
  Transmission Date: 20080405
  Serious: No
  Sender: FDA-Public Use
  Company Number: US-BRISTOL-MYERS SQUIBB COMPANY-13628060

PATIENT
  Age: 56 Year
  Sex: Male

DRUGS (3)
  1. AVAPRO [Suspect]
     Indication: CARDIOVASCULAR DISORDER
  2. AMBIEN [Concomitant]
  3. PRILOSEC [Concomitant]

REACTIONS (1)
  - INSOMNIA [None]
